FAERS Safety Report 5889881-2 (Version None)
Quarter: 2008Q3

REPORT INFORMATION
  Report Type: 
  Country: None (occurrence: None)
  Receive Date: 20080919
  Receipt Date: 20080908
  Transmission Date: 20090109
  Serious: Yes (Other)
  Sender: FDA-Public Use
  Company Number: HQWYE631502FEB06

PATIENT
  Sex: Male

DRUGS (2)
  1. GEMTUZUMAB OZOGAMICIN [Suspect]
     Indication: ACUTE MYELOID LEUKAEMIA RECURRENT
     Route: 042
     Dates: start: 20051110, end: 20051110
  2. GEMTUZUMAB OZOGAMICIN [Suspect]
     Route: 042
     Dates: start: 20051124, end: 20051124

REACTIONS (8)
  - ABDOMINAL PAIN [None]
  - BLOOD TEST ABNORMAL [None]
  - HYPERTENSION [None]
  - INTRAVASCULAR HAEMOLYSIS [None]
  - MALAISE [None]
  - PYREXIA [None]
  - STAPHYLOCOCCAL SEPSIS [None]
  - THROMBOCYTOPENIA [None]
